FAERS Safety Report 22216526 (Version 1)
Quarter: 2023Q2

REPORT INFORMATION
  Report Type: Spontaneous
  Country: US (occurrence: US)
  Receive Date: 20230417
  Receipt Date: 20230417
  Transmission Date: 20230722
  Serious: No
  Sender: FDA-Public Use
  Company Number: US-APOTEX-2022AP011961

PATIENT
  Sex: Female

DRUGS (3)
  1. MOMETASONE FUROATE [Suspect]
     Active Substance: MOMETASONE FUROATE
     Indication: Multiple allergies
     Dosage: 4 DOSAGE FORM (2 SPRAYS IN EACH NOSTRIL), QD
     Route: 045
     Dates: start: 202206
  2. XYZAL [Concomitant]
     Active Substance: LEVOCETIRIZINE DIHYDROCHLORIDE
     Indication: Multiple allergies
     Dosage: 1 DOSAGE FORM, Q.H.S. (ONCE DAILY AT NIGHT)
     Route: 065
  3. ADDERALL [Concomitant]
     Active Substance: AMPHETAMINE ASPARTATE\AMPHETAMINE SULFATE\DEXTROAMPHETAMINE SACCHARATE\DEXTROAMPHETAMINE SULFATE
     Indication: Attention deficit hyperactivity disorder
     Dosage: 1 DOSAGE FORM, QD
     Route: 065

REACTIONS (2)
  - Product odour abnormal [Unknown]
  - No adverse event [Unknown]

NARRATIVE: CASE EVENT DATE: 20220625
